FAERS Safety Report 5553964-7 (Version None)
Quarter: 2007Q4

REPORT INFORMATION
  Report Type: 
  Country: None (occurrence: None)
  Receive Date: 20071212
  Receipt Date: 20071212
  Transmission Date: 20080405
  Serious: Yes (Life-Threatening, Hospitalization)
  Sender: FDA-Public Use
  Company Number: None

PATIENT
  Sex: Female
  Weight: 134.7183 kg

DRUGS (13)
  1. SYMBICORT [Suspect]
     Indication: CHRONIC OBSTRUCTIVE PULMONARY DISEASE
     Dosage: 160/4.2  2 PUFF BID
     Dates: start: 20071121
  2. SYMBICORT [Suspect]
     Indication: DYSPNOEA
     Dosage: 160/4.2  2 PUFF BID
     Dates: start: 20071121
  3. LYRICA [Concomitant]
  4. CLONIDINE [Concomitant]
  5. LIPITOR [Concomitant]
  6. PROTONIX [Concomitant]
  7. SINGULAIR [Concomitant]
  8. ALBUTEROL [Concomitant]
  9. BYETTA [Concomitant]
  10. LANTUS [Concomitant]
  11. ALTACE [Concomitant]
  12. AMARYL [Concomitant]
  13. TOPROL-XL [Concomitant]

REACTIONS (4)
  - HYPOAESTHESIA FACIAL [None]
  - HYPOAESTHESIA ORAL [None]
  - SWELLING FACE [None]
  - SWOLLEN TONGUE [None]
